FAERS Safety Report 5981246-8 (Version None)
Quarter: 2008Q4

REPORT INFORMATION
  Report Type: 
  Country: None (occurrence: None)
  Receive Date: 20081205
  Receipt Date: 20081202
  Transmission Date: 20090506
  Serious: Yes (Death, Hospitalization)
  Sender: FDA-Public Use
  Company Number: FR-SANOFI-SYNTHELABO-F01200801811

PATIENT
  Sex: Male
  Weight: 50 kg

DRUGS (14)
  1. PRIMPERAN TAB [Concomitant]
     Dosage: UNK
  2. CLINOMEL [Concomitant]
     Indication: NUTRITIONAL CONDITION ABNORMAL
     Dosage: UNK
  3. TRIFLUCAN [Concomitant]
     Dosage: UNK
  4. TERALITHE [Concomitant]
     Indication: BIPOLAR DISORDER
     Dosage: UNK
  5. LYRICA [Concomitant]
     Indication: HERPES ZOSTER
     Dosage: UNK
     Dates: start: 20080704
  6. CORTANCYL [Concomitant]
     Dosage: UNK
  7. INIPOMP [Concomitant]
     Dosage: UNK
     Dates: start: 20080826
  8. MOPRAL [Concomitant]
     Dosage: UNK
     Dates: start: 20080530
  9. BACTRIM [Concomitant]
     Dosage: UNK
     Dates: start: 20080530
  10. ZENTEL [Concomitant]
     Dosage: UNK
     Dates: start: 20080530
  11. GEMCITABINE HCL [Suspect]
     Dosage: D2, Q2W
     Route: 041
     Dates: start: 20080812, end: 20080812
  12. RITUXIMAB [Suspect]
     Dosage: D1, Q2W
     Route: 041
     Dates: start: 20080811, end: 20080811
  13. ENZASTAURIN [Suspect]
     Route: 048
     Dates: start: 20080620, end: 20080826
  14. OXALIPLATIN [Suspect]
     Indication: DIFFUSE LARGE B-CELL LYMPHOMA
     Dosage: D2, Q2W
     Route: 041
     Dates: start: 20080620, end: 20080812

REACTIONS (1)
  - CEREBROVASCULAR ACCIDENT [None]
